FAERS Safety Report 17156680 (Version 1)
Quarter: 2019Q4

REPORT INFORMATION
  Report Type: Spontaneous
  Country: GB (occurrence: TH)
  Receive Date: 20191216
  Receipt Date: 20191216
  Transmission Date: 20200122
  Serious: Yes (Other)
  Sender: FDA-Public Use
  Company Number: GB-TEVA-2019-GB-1151869

PATIENT
  Sex: Male

DRUGS (1)
  1. ABACAVIR AND LAMIVUDINE [Suspect]
     Active Substance: ABACAVIR SULFATE\LAMIVUDINE
     Indication: HIV TEST POSITIVE
     Dosage: 1 DOSAGE FORMS DAILY; 1 TABLET PER NIGHT;
     Dates: start: 2014

REACTIONS (2)
  - Syncope [Unknown]
  - Fall [Unknown]
